FAERS Safety Report 5104417-1 (Version None)
Quarter: 2006Q3

REPORT INFORMATION
  Report Type: 
  Country: None (occurrence: None)
  Receive Date: 20060908
  Receipt Date: 20060908
  Transmission Date: 20061208
  Serious: Yes (Hospitalization)
  Sender: FDA-Public Use
  Company Number: None

PATIENT
  Age: 50 Year
  Sex: Male
  Weight: 64.3 kg

DRUGS (1)
  1. DIAZEPAM [Suspect]
     Indication: DRUG USE FOR UNKNOWN INDICATION
     Dosage: NOT FROM US PO
     Route: 048

REACTIONS (5)
  - DRUG ABUSER [None]
  - HAEMATEMESIS [None]
  - INTENTIONAL OVERDOSE [None]
  - NAUSEA [None]
  - SELF-INJURIOUS IDEATION [None]
